FAERS Safety Report 5203838-6 (Version None)
Quarter: 2007Q1

REPORT INFORMATION
  Report Type: 
  Country: None (occurrence: None)
  Receive Date: 20070108
  Receipt Date: 20070108
  Transmission Date: 20070707
  Serious: Yes (Other)
  Sender: FDA-Public Use
  Company Number: None

PATIENT
  Age: 45 Year
  Sex: Female
  Weight: 40.8237 kg

DRUGS (1)
  1. SPIRIVA [Suspect]
     Indication: TUBERCULOSIS
     Dosage: TWO INHALATIONS DAILY PO
     Route: 048

REACTIONS (1)
  - HALO VISION [None]
